FAERS Safety Report 9034344 (Version 1)
Quarter: 2013Q1

REPORT INFORMATION
  Report Type: Spontaneous
  Country: US (occurrence: None)
  Receive Date: 20130116
  Receipt Date: 20130116
  Transmission Date: 20140127
  Serious: Yes (Disabling)
  Sender: FDA-Public Use
  Company Number: None

PATIENT
  Age: 44 Year
  Sex: Male
  Weight: 108.86 kg

DRUGS (1)
  1. KENALOG ? ? [Suspect]
     Indication: ARTHRALGIA
     Dosage: 80MG  WEEKLY 3 WEEKS EPIDURAL
     Route: 008
     Dates: start: 20110222, end: 20110308

REACTIONS (5)
  - Paraesthesia [None]
  - Pain [None]
  - Unevaluable event [None]
  - Cauda equina syndrome [None]
  - Arachnoiditis [None]
